FAERS Safety Report 9248155 (Version 1)
Quarter: 2013Q1

REPORT INFORMATION
  Report Type: Spontaneous
  Country: US (occurrence: None)
  Receive Date: 20130305
  Receipt Date: 20130305
  Transmission Date: 20140127
  Serious: Yes (Other)
  Sender: FDA-Public Use
  Company Number: 163-21880-12101057

PATIENT
  Age: 80 Year
  Sex: Female

DRUGS (11)
  1. REVLIMID (LENALIDOMIDE) [Suspect]
     Indication: MYELODYSPLASTIC SYNDROME
     Dates: start: 20111208
  2. FOLIC ACID [Concomitant]
  3. VITAMIN B6 [Concomitant]
  4. VITAMIN B12 (CYANOCOBALAMIN) [Concomitant]
  5. BACTRIM DS (BACTRIM) [Concomitant]
  6. BENADRYL (CLONALIN) [Concomitant]
  7. CARBOPLATIN (CARBOPLATIN) [Concomitant]
  8. CYANOCOBALAMIN (CYANOCOBALAMIN) [Concomitant]
  9. DEXAMETHASONE (DEXAMETHASONE) [Concomitant]
  10. FISH OIL (FISH OIL) [Concomitant]
  11. LEVOTHYROXINE SODIUM (LEVOTHYROXINE SODIUM) [Concomitant]

REACTIONS (2)
  - Rash pruritic [None]
  - Rash [None]
